FAERS Safety Report 6047257-1 (Version None)
Quarter: 2009Q1

REPORT INFORMATION
  Report Type: 
  Country: None (occurrence: None)
  Receive Date: 20090121
  Receipt Date: 20071215
  Transmission Date: 20090719
  Serious: Yes (Other)
  Sender: FDA-Public Use
  Company Number: 2007US002875

PATIENT
  Age: 51 Year
  Sex: Female

DRUGS (3)
  1. VESICARE [Suspect]
     Indication: HYPERTONIC BLADDER
     Dosage: 5 MG, UID/QD, ORAL ; 5 MG, UID/QD, ORAL
     Route: 048
     Dates: start: 20070801, end: 20070903
  2. VESICARE [Suspect]
     Indication: HYPERTONIC BLADDER
     Dosage: 5 MG, UID/QD, ORAL ; 5 MG, UID/QD, ORAL
     Route: 048
     Dates: start: 20071001, end: 20071001
  3. VICODIN [Concomitant]

REACTIONS (1)
  - DIZZINESS [None]
